FAERS Safety Report 10271430 (Version 1)
Quarter: 2014Q3

REPORT INFORMATION
  Report Type: Spontaneous
  Country: FR (occurrence: FR)
  Receive Date: 20140701
  Receipt Date: 20140701
  Transmission Date: 20150326
  Serious: Yes (Hospitalization)
  Sender: FDA-Public Use
  Company Number: FR-ASTRAZENECA-2014SE46372

PATIENT
  Age: 66 Year
  Sex: Male

DRUGS (12)
  1. PARACETAMOL [Suspect]
     Active Substance: ACETAMINOPHEN
     Indication: CLAVICLE FRACTURE
     Route: 048
  2. KARDEGIC [Concomitant]
     Active Substance: ASPIRIN LYSINE
     Dosage: 75 MG AT MIDDAY
  3. PRAVASTATIN [Concomitant]
     Active Substance: PRAVASTATIN\PRAVASTATIN SODIUM
  4. MICARDIS PLUS [Concomitant]
     Active Substance: HYDROCHLOROTHIAZIDE\TELMISARTAN
     Dosage: 80 MG/25 MG, 1 DF EVERY MORNING
  5. LYRICA [Concomitant]
     Active Substance: PREGABALIN
  6. ISOPTIN [Concomitant]
     Active Substance: VERAPAMIL HYDROCHLORIDE
     Dosage: SR, 240 MG EVERY MORNING
  7. METFORMINE [Concomitant]
     Active Substance: METFORMIN HYDROCHLORIDE
  8. CODEINE [Suspect]
     Active Substance: CODEINE
     Indication: CLAVICLE FRACTURE
     Route: 048
  9. MOPRAL [Suspect]
     Active Substance: OMEPRAZOLE SODIUM
     Route: 048
  10. GLIBENCLAMIDE [Suspect]
     Active Substance: GLYBURIDE
     Route: 048
  11. TARDYFERON [Suspect]
     Active Substance: FERROUS SULFATE\FOLIC ACID
     Route: 048
  12. AMLODIPINE [Concomitant]
     Active Substance: AMLODIPINE BESYLATE

REACTIONS (3)
  - Constipation [Recovered/Resolved]
  - Urinary retention [Recovered/Resolved]
  - Faecaloma [Recovered/Resolved]

NARRATIVE: CASE EVENT DATE: 2014
